FAERS Safety Report 7153352-6 (Version None)
Quarter: 2010Q4

REPORT INFORMATION
  Report Type: 
  Country: None (occurrence: None)
  Receive Date: 20101213
  Receipt Date: 20101202
  Transmission Date: 20110411
  Serious: Yes (Other)
  Sender: FDA-Public Use
  Company Number: JP-ROCHE-747355

PATIENT
  Sex: Female

DRUGS (6)
  1. ACTEMRA [Suspect]
     Indication: RHEUMATOID ARTHRITIS
     Route: 041
     Dates: start: 20100107, end: 20101104
  2. BAKTAR [Concomitant]
     Dosage: DRUG NAME:BAKTAR(SULFAMETHOXAZOLE_TRIMETHOPRIM)
     Route: 048
  3. AZULFIDINE [Concomitant]
     Dosage: DRUG NAME: AZULFIDINE-EN(SALAZOSULFAPYRIDINE)
     Route: 048
  4. MOBIC [Concomitant]
     Route: 048
  5. BONALON [Concomitant]
     Dosage: DRUG NAME: BONALON 35MG(ALENDRONATE SODIUM HYDRATE)
     Route: 048
  6. PREDONINE [Concomitant]
     Route: 048

REACTIONS (1)
  - VASCULITIS [None]
